FAERS Safety Report 6659629-2 (Version None)
Quarter: 2010Q1

REPORT INFORMATION
  Report Type: 
  Country: None (occurrence: None)
  Receive Date: 20100330
  Receipt Date: 20100318
  Transmission Date: 20100710
  Serious: Yes (Other)
  Sender: FDA-Public Use
  Company Number: BR-PFIZER INC-2010034963

PATIENT
  Age: 56 Year
  Sex: Male
  Weight: 62 kg

DRUGS (5)
  1. FRONTAL [Suspect]
     Indication: ANXIETY
     Dosage: 0.5 MG, 1X/DAY
     Route: 048
     Dates: start: 20100317, end: 20100317
  2. FRONTAL [Suspect]
     Indication: DEPRESSION
  3. FRONTAL [Suspect]
     Indication: NERVOUSNESS
  4. PROPRANOLOL HYDROCHLORIDE + HYDROCHLOROTHIAZIDE [Suspect]
     Indication: BLOOD PRESSURE INCREASED
     Dosage: UNK
     Dates: start: 20000101, end: 20090101
  5. PROPRANOLOL HYDROCHLORIDE + HYDROCHLOROTHIAZIDE [Suspect]
     Dosage: [PROPRANOLOL HYDROCHLORIDE 40MG] / [HYDROCHLOROTHIAZIDE 25MG], 1X/DAY
     Dates: start: 20100318, end: 20100318

REACTIONS (10)
  - ANXIETY [None]
  - ARRHYTHMIA [None]
  - BLOOD PRESSURE INCREASED [None]
  - DEPRESSION [None]
  - DIZZINESS [None]
  - HEART RATE DECREASED [None]
  - INAPPROPRIATE SCHEDULE OF DRUG ADMINISTRATION [None]
  - NERVOUSNESS [None]
  - PROSTATE CANCER [None]
  - TREATMENT NONCOMPLIANCE [None]
